FAERS Safety Report 9279336 (Version 1)
Quarter: 2013Q2

REPORT INFORMATION
  Report Type: Spontaneous
  Country: US (occurrence: US)
  Receive Date: 20130508
  Receipt Date: 20130508
  Transmission Date: 20140414
  Serious: Yes (Other)
  Sender: FDA-Public Use
  Company Number: US-ELI_LILLY_AND_COMPANY-US201305000162

PATIENT
  Age: 32 Year
  Sex: Male

DRUGS (2)
  1. HUMALOG LISPRO [Suspect]
     Indication: DIABETES MELLITUS
     Dosage: UNK
     Route: 058
  2. HUMALOG LISPRO [Suspect]
     Dosage: 13 U, SINGLE

REACTIONS (3)
  - Hyperglycaemia [Not Recovered/Not Resolved]
  - Blood glucose increased [Unknown]
  - Incorrect storage of drug [Unknown]
